FAERS Safety Report 7887738-9 (Version None)
Quarter: 2011Q4

REPORT INFORMATION
  Report Type: 
  Country: None (occurrence: None)
  Receive Date: 20111101
  Receipt Date: 20111019
  Transmission Date: 20120403
  Serious: Yes (Other)
  Sender: FDA-Public Use
  Company Number: 2011SP049855

PATIENT
  Age: 39 Year
  Sex: Male

DRUGS (9)
  1. CYMBALTA [Concomitant]
  2. PRILOSEC [Concomitant]
  3. RIBAVIRIN [Suspect]
     Indication: HEPATITIS C
     Dates: start: 20110601
  4. AMOXICILLIN [Concomitant]
  5. VICTRELIS [Suspect]
     Indication: HEPATITIS C
     Dosage: 800 MG;TID;PO
     Route: 048
     Dates: start: 20110701
  6. PEGASYS [Suspect]
     Indication: HEPATITIS C
     Dates: start: 20110601
  7. VALIUM [Concomitant]
  8. WELLBUTRIN [Concomitant]
  9. ALBUTEROL [Concomitant]

REACTIONS (9)
  - VOMITING [None]
  - DIZZINESS [None]
  - FEELING ABNORMAL [None]
  - STRESS [None]
  - WEIGHT DECREASED [None]
  - VISUAL IMPAIRMENT [None]
  - HEADACHE [None]
  - DYSPNOEA [None]
  - CONDITION AGGRAVATED [None]
